FAERS Safety Report 23700719 (Version 2)
Quarter: 2024Q2

REPORT INFORMATION
  Report Type: Spontaneous
  Country: FR (occurrence: FR)
  Receive Date: 20240403
  Receipt Date: 20240516
  Transmission Date: 20240716
  Serious: Yes (Other)
  Sender: FDA-Public Use
  Company Number: FR-ALXN-202312EEA001332FR

PATIENT
  Age: 83 Year
  Sex: Female

DRUGS (2)
  1. SOLIRIS [Suspect]
     Active Substance: ECULIZUMAB
     Indication: C3 glomerulopathy
     Dosage: 900 MILLIGRAM, QW
     Route: 065
     Dates: start: 20231226
  2. SOLIRIS [Suspect]
     Active Substance: ECULIZUMAB
     Dosage: 1200 MILLIGRAM, Q2W
     Route: 065

REACTIONS (3)
  - Parvovirus B19 infection [Unknown]
  - Blood sodium increased [Unknown]
  - Off label use [Recovering/Resolving]

NARRATIVE: CASE EVENT DATE: 20231226
